FAERS Safety Report 8545420 (Version 2)
Quarter: 2013Q2

REPORT INFORMATION
  Report Type: Spontaneous
  Country: US (occurrence: US)
  Receive Date: 20120503
  Receipt Date: 20130626
  Transmission Date: 20140414
  Serious: Yes (Hospitalization, Other)
  Sender: FDA-Public Use
  Company Number: US-PFIZER INC-2012106518

PATIENT
  Age: 60 Year
  Sex: Female

DRUGS (4)
  1. AMLODIPINE BESILATE [Suspect]
     Dosage: 10 MG, 2X/DAY
     Route: 048
  2. NIFEDIPINE [Concomitant]
  3. METOPROLOL [Concomitant]
     Dosage: UNK
  4. ACETYLSALICYLIC ACID [Concomitant]

REACTIONS (4)
  - Ileus paralytic [Recovered/Resolved]
  - Cardiogenic shock [Recovered/Resolved]
  - Toxicity to various agents [Unknown]
  - Lactic acidosis [Recovered/Resolved]
